FAERS Safety Report 9460701 (Version 2)
Quarter: 2013Q3

REPORT INFORMATION
  Report Type: Spontaneous
  Country: GB (occurrence: None)
  Receive Date: 20130813
  Receipt Date: 20130815
  Transmission Date: 20140515
  Serious: Yes (Disabling)
  Sender: FDA-Public Use
  Company Number: AUR-APL-2013-06576

PATIENT
  Age: 79 Year
  Sex: Male

DRUGS (6)
  1. TAMSULOSIN [Suspect]
     Indication: URINARY TRACT OBSTRUCTION
     Dosage: 400 MCG (400 MCG, 1 IN 1 D), ORAL
     Route: 048
     Dates: start: 20130706, end: 20130726
  2. BISACODYL (BISACODYL) [Concomitant]
  3. BISOPROLOL (BISOPROLOL) [Concomitant]
  4. OMEPRAZOLE (OMEPRAZOLE [Concomitant]
  5. PARACETAMOL (PARACETAMOL) [Concomitant]
  6. SIMVASTATIN (SIMVASTATIN) [Concomitant]

REACTIONS (6)
  - Testicular pain [None]
  - Testicular swelling [None]
  - Groin pain [None]
  - Local swelling [None]
  - Arthralgia [None]
  - Joint swelling [None]
